FAERS Safety Report 17916572 (Version 2)
Quarter: 2020Q3

REPORT INFORMATION
  Report Type: Spontaneous
  Country: US (occurrence: US)
  Receive Date: 20200619
  Receipt Date: 20200703
  Transmission Date: 20201103
  Serious: Yes (Other)
  Sender: FDA-Public Use
  Company Number: US-SUNOVION-2020SUN001780

PATIENT
  Age: 36 Year
  Sex: Male

DRUGS (1)
  1. LATUDA [Suspect]
     Active Substance: LURASIDONE HYDROCHLORIDE
     Dosage: 40 MG
     Route: 048
     Dates: start: 20200301

REACTIONS (4)
  - Suicidal ideation [Not Recovered/Not Resolved]
  - Emotional distress [Not Recovered/Not Resolved]
  - Affect lability [Not Recovered/Not Resolved]
  - Paranoia [Not Recovered/Not Resolved]
